FAERS Safety Report 5241129-8 (Version None)
Quarter: 2007Q1

REPORT INFORMATION
  Report Type: 
  Country: None (occurrence: None)
  Receive Date: 20070214
  Receipt Date: 20070214
  Transmission Date: 20070707
  Serious: Yes (Hospitalization)
  Sender: FDA-Public Use
  Company Number: None

PATIENT
  Age: 82 Year
  Sex: Female
  Weight: 85.7 kg

DRUGS (12)
  1. HYDROMORPHONE HCL [Suspect]
     Indication: PAIN
     Dosage: 2MG IV X1
     Route: 042
     Dates: start: 20061101
  2. CARAFATE [Concomitant]
  3. AROMASIN [Concomitant]
  4. REGLAN [Concomitant]
  5. TOPROL-XL [Concomitant]
  6. VASOTEC [Concomitant]
  7. VICODIN [Concomitant]
  8. VYTORIN [Concomitant]
  9. PROTONIX [Concomitant]
  10. AMBIEN [Concomitant]
  11. IMDUR [Concomitant]
  12. INSULIN [Concomitant]

REACTIONS (2)
  - APNOEA [None]
  - LOSS OF CONSCIOUSNESS [None]
